FAERS Safety Report 11447226 (Version 1)
Quarter: 2015Q3

REPORT INFORMATION
  Report Type: Spontaneous
  Country: US (occurrence: US)
  Receive Date: 20150831
  Receipt Date: 20150831
  Transmission Date: 20151125
  Serious: No
  Sender: FDA-Public Use
  Company Number: US-ELI_LILLY_AND_COMPANY-US200812005778

PATIENT
  Age: 64 Year
  Sex: Male

DRUGS (2)
  1. GABAPENTIN. [Concomitant]
     Active Substance: GABAPENTIN
     Indication: NEUROPATHY PERIPHERAL
  2. CYMBALTA [Suspect]
     Active Substance: DULOXETINE HYDROCHLORIDE
     Indication: SLEEP DISORDER
     Dosage: 30 MG, UNK
     Route: 048
     Dates: start: 20081217

REACTIONS (4)
  - Flatulence [Unknown]
  - Malaise [Recovered/Resolved]
  - Facial pain [Unknown]
  - Erythema [Unknown]

NARRATIVE: CASE EVENT DATE: 20081218
